FAERS Safety Report 10678573 (Version 3)
Quarter: 2016Q3

REPORT INFORMATION
  Report Type: Spontaneous
  Country: CA (occurrence: CA)
  Receive Date: 20141229
  Receipt Date: 20160816
  Transmission Date: 20161109
  Serious: Yes (Hospitalization, Other)
  Sender: FDA-Public Use
  Company Number: CA-ELI_LILLY_AND_COMPANY-CA201412007367

PATIENT
  Sex: Male

DRUGS (8)
  1. PROSCAR [Concomitant]
     Active Substance: FINASTERIDE
     Indication: PRODUCT USED FOR UNKNOWN INDICATION
     Dosage: UNK, UNKNOWN
     Route: 065
  2. CYMBALTA [Suspect]
     Active Substance: DULOXETINE HYDROCHLORIDE
     Indication: MAJOR DEPRESSION
     Dosage: 60 MG, EACH MORNING
     Route: 048
     Dates: start: 2009
  3. CYMBALTA [Suspect]
     Active Substance: DULOXETINE HYDROCHLORIDE
     Dosage: UNK, UNKNOWN
     Route: 065
     Dates: start: 201204
  4. CYMBALTA [Suspect]
     Active Substance: DULOXETINE HYDROCHLORIDE
     Dosage: 60 MG, EACH MORNING
     Route: 065
     Dates: start: 20120904
  5. ASPIRIN                            /00002701/ [Concomitant]
     Active Substance: ASPIRIN
     Indication: PRODUCT USED FOR UNKNOWN INDICATION
     Dosage: UNK, UNKNOWN
     Route: 065
  6. ALTACE [Concomitant]
     Active Substance: RAMIPRIL
     Indication: BLOOD PRESSURE MEASUREMENT
     Dosage: UNK, UNKNOWN
     Route: 065
  7. CYMBALTA [Suspect]
     Active Substance: DULOXETINE HYDROCHLORIDE
     Dosage: 2 DF, EACH EVENING
     Route: 065
     Dates: start: 20120904
  8. CYMBALTA [Suspect]
     Active Substance: DULOXETINE HYDROCHLORIDE
     Dosage: 6-8 CAPSULES
     Route: 065
     Dates: start: 20120904

REACTIONS (14)
  - Loss of consciousness [Unknown]
  - Homicide [Unknown]
  - Physical assault [Unknown]
  - Depressed mood [Unknown]
  - Anxiety [Unknown]
  - Impulsive behaviour [Unknown]
  - Chest pain [Unknown]
  - Anger [Unknown]
  - Energy increased [Unknown]
  - Judgement impaired [Unknown]
  - Personality change [Unknown]
  - Mania [Unknown]
  - Amnesia [Unknown]
  - Overdose [Unknown]

NARRATIVE: CASE EVENT DATE: 20120904
